APPROVED DRUG PRODUCT: DOXYCYCLINE HYCLATE
Active Ingredient: DOXYCYCLINE HYCLATE
Strength: EQ 20MG BASE
Dosage Form/Route: TABLET;ORAL
Application: A065182 | Product #001 | TE Code: AB
Applicant: EPIC PHARMA LLC
Approved: May 13, 2005 | RLD: No | RS: No | Type: RX